FAERS Safety Report 9927735 (Version 1)
Quarter: 2014Q1

REPORT INFORMATION
  Report Type: Spontaneous
  Country: US (occurrence: US)
  Receive Date: 20140227
  Receipt Date: 20140227
  Transmission Date: 20141002
  Serious: Yes (Hospitalization)
  Sender: FDA-Public Use
  Company Number: US-JNJFOC-20140210035

PATIENT
  Age: 83 Year
  Sex: Female
  Weight: 66.23 kg

DRUGS (9)
  1. BENGAY VANISHING SCENT [Suspect]
     Indication: ARTHRALGIA
     Dosage: QUARTER SIZE, EVERY NIGHT
     Route: 061
  2. ALPRAZOLAM [Concomitant]
     Indication: ANXIETY
     Dosage: IF NEEDED
     Route: 065
  3. CATAPRES [Concomitant]
     Indication: PRODUCT USED FOR UNKNOWN INDICATION
     Route: 065
  4. COREG [Concomitant]
     Indication: BLOOD PRESSURE
     Dosage: ^ONE TWICE^
     Route: 065
  5. COUMADIN [Concomitant]
     Indication: PRODUCT USED FOR UNKNOWN INDICATION
     Dosage: ^M W F 11/2 OTHER DAYS^
     Route: 065
  6. CRESTOR [Concomitant]
     Indication: PRODUCT USED FOR UNKNOWN INDICATION
     Route: 065
  7. FUROSEMIDE [Concomitant]
     Indication: DIURETIC THERAPY
     Route: 065
  8. PLAVIX [Concomitant]
     Indication: PRODUCT USED FOR UNKNOWN INDICATION
     Route: 065
  9. SPIRAMYCIN [Concomitant]
     Indication: PRODUCT USED FOR UNKNOWN INDICATION
     Route: 065

REACTIONS (6)
  - Pain [Not Recovered/Not Resolved]
  - Local swelling [Not Recovered/Not Resolved]
  - Nausea [Not Recovered/Not Resolved]
  - Application site reaction [Not Recovered/Not Resolved]
  - Application site warmth [Not Recovered/Not Resolved]
  - Product packaging issue [Unknown]
